FAERS Safety Report 21667775 (Version 13)
Quarter: 2024Q2

REPORT INFORMATION
  Report Type: Spontaneous
  Country: US (occurrence: US)
  Receive Date: 20221201
  Receipt Date: 20240517
  Transmission Date: 20240716
  Serious: Yes (Hospitalization, Other)
  Sender: FDA-Public Use
  Company Number: US-PFIZER INC-PV202200114112

PATIENT
  Age: 94 Year
  Sex: Male
  Weight: 95.238 kg

DRUGS (5)
  1. CIBINQO [Suspect]
     Active Substance: ABROCITINIB
     Indication: Dermatitis atopic
     Dosage: 100 MG
     Route: 048
  2. CIBINQO [Suspect]
     Active Substance: ABROCITINIB
     Indication: Lichen planus
     Dosage: 100 MG, DAILY
     Route: 048
     Dates: start: 202310
  3. CIBINQO [Suspect]
     Active Substance: ABROCITINIB
     Indication: Stasis dermatitis
     Dosage: 100 MG, 1X/DAY
     Route: 048
     Dates: start: 20210220
  4. CIBINQO [Suspect]
     Active Substance: ABROCITINIB
     Indication: Xerosis
  5. CIBINQO [Suspect]
     Active Substance: ABROCITINIB
     Indication: Seborrhoeic keratosis

REACTIONS (8)
  - Cardiac failure congestive [Unknown]
  - Skin lesion [Recovered/Resolved]
  - Pruritus [Recovered/Resolved]
  - Pericardial effusion [Unknown]
  - Illness [Unknown]
  - Urinary tract infection [Not Recovered/Not Resolved]
  - Hypoacusis [Unknown]
  - Frustration tolerance decreased [Unknown]

NARRATIVE: CASE EVENT DATE: 20231106
